FAERS Safety Report 5021037-8 (Version None)
Quarter: 2006Q2

REPORT INFORMATION
  Report Type: 
  Country: None (occurrence: None)
  Receive Date: 20060607
  Receipt Date: 20060607
  Transmission Date: 20061013
  Serious: No
  Sender: FDA-Public Use
  Company Number: None

PATIENT
  Sex: Female
  Weight: 92.0802 kg

DRUGS (2)
  1. DURAGESIC-75 [Suspect]
     Indication: BACK PAIN
     Dosage: 75 MG CHANGE Q 72 HR PATCH
  2. DURAGESIC-75 [Suspect]
     Indication: SURGERY
     Dosage: 75 MG CHANGE Q 72 HR PATCH

REACTIONS (2)
  - DRUG INEFFECTIVE [None]
  - THERAPEUTIC RESPONSE UNEXPECTED WITH DRUG SUBSTITUTION [None]
